FAERS Safety Report 8772712 (Version 4)
Quarter: 2012Q4

REPORT INFORMATION
  Report Type: 
  Country: FI (occurrence: FI)
  Receive Date: 20120905
  Receipt Date: 20120927
  Transmission Date: 20130627
  Serious: Yes (Other)
  Sender: FDA-Public Use
  Company Number: FI-PFIZER INC-2012214574

PATIENT
  Age: 50 Year
  Sex: Female

DRUGS (8)
  1. LYRICA [Suspect]
     Indication: NEURALGIA
     Dosage: UNK
     Dates: start: 201206
  2. LYRICA [Interacting]
     Dosage: 75 mg + 150 mg, daily
     Dates: start: 201206, end: 20120914
  3. CERAZETTE [Interacting]
     Indication: MENSTRUAL DISORDER
     Dosage: UNK
  4. CERAZETTE [Interacting]
     Indication: CONTRACEPTION
  5. PANADOL [Suspect]
     Indication: HEADACHE
  6. LOSATRIX COMP [Concomitant]
     Indication: HYPERTENSION
  7. SIRDALUD [Concomitant]
     Dosage: Took only in two evenings in total
  8. LANSOPRAZOLE ACTAVIS [Concomitant]
     Dosage: twice daily

REACTIONS (24)
  - Drug interaction [Not Recovered/Not Resolved]
  - Musculoskeletal stiffness [Not Recovered/Not Resolved]
  - Neck pain [Not Recovered/Not Resolved]
  - Impaired driving ability [Not Recovered/Not Resolved]
  - General physical health deterioration [Not Recovered/Not Resolved]
  - Mood altered [Recovering/Resolving]
  - Irritability [Recovering/Resolving]
  - Oedema peripheral [Not Recovered/Not Resolved]
  - Fatigue [Not Recovered/Not Resolved]
  - Drug effect incomplete [Not Recovered/Not Resolved]
  - Withdrawal syndrome [Not Recovered/Not Resolved]
  - Dizziness [Not Recovered/Not Resolved]
  - Headache [Not Recovered/Not Resolved]
  - Sleep disorder [Not Recovered/Not Resolved]
  - Feeling abnormal [Recovering/Resolving]
  - Pain [Not Recovered/Not Resolved]
  - Tremor [Unknown]
  - Hot flush [Unknown]
  - Hyperhidrosis [Unknown]
  - Feeling cold [Unknown]
  - Menopause [Not Recovered/Not Resolved]
  - Malaise [Unknown]
  - Vomiting [Recovered/Resolved]
  - Pain in extremity [Unknown]
